FAERS Safety Report 9181116 (Version 2)
Quarter: 2013Q3

REPORT INFORMATION
  Report Type: Spontaneous
  Country: US (occurrence: US)
  Receive Date: 20130322
  Receipt Date: 20130827
  Transmission Date: 20140515
  Serious: Yes (Other)
  Sender: FDA-Public Use
  Company Number: US-BAYER-2013-034555

PATIENT
  Age: 27 Year
  Sex: Female
  Weight: 79.37 kg

DRUGS (4)
  1. YAZ [Suspect]
     Indication: CONTRACEPTION
     Dosage: UNK
     Dates: start: 2008, end: 201102
  2. YASMIN [Suspect]
     Dosage: UNK
     Dates: start: 2008, end: 201102
  3. IBUPROFEN [Concomitant]
     Route: 048
  4. CIPRO [Concomitant]

REACTIONS (8)
  - Deep vein thrombosis [None]
  - Thrombocytopenia [None]
  - Injury [None]
  - Pain [None]
  - Contusion [None]
  - Cardiovascular disorder [None]
  - Fear of disease [None]
  - Pain [None]
